FAERS Safety Report 21138409 (Version 1)
Quarter: 2022Q3

REPORT INFORMATION
  Report Type: Spontaneous
  Country: RU (occurrence: None)
  Receive Date: 20220727
  Receipt Date: 20220727
  Transmission Date: 20221027
  Serious: Yes (Other)
  Sender: FDA-Public Use
  Company Number: 2022A266974

PATIENT
  Age: 67 Year
  Sex: Female

DRUGS (1)
  1. IMFINZI [Suspect]
     Active Substance: DURVALUMAB
     Indication: Small cell lung cancer extensive stage
     Dosage: 1500 MG ONCE EVERY 3 WEEKS AND THEN ONCE EVERY 4 WEEKS
     Route: 042

REACTIONS (1)
  - Malignant neoplasm progression [Unknown]
